FAERS Safety Report 8938073 (Version 1)
Quarter: 2012Q4

REPORT INFORMATION
  Report Type: 
  Country: CH (occurrence: CH)
  Receive Date: 20121130
  Receipt Date: 20121130
  Transmission Date: 20130627
  Serious: Yes (Death)
  Sender: FDA-Public Use
  Company Number: CH-ELI_LILLY_AND_COMPANY-CH201211009539

PATIENT

DRUGS (3)
  1. GEMCITABINE HYDROCHLORIDE [Suspect]
     Indication: NON-SMALL CELL LUNG CANCER
     Dosage: 1250 mg/m2, other
  2. BEVACIZUMAB [Concomitant]
     Indication: NON-SMALL CELL LUNG CANCER
     Dosage: 15 mg/kg, other
     Route: 042
  3. ERLOTINIB [Concomitant]
     Indication: NON-SMALL CELL LUNG CANCER
     Dosage: 150 mg, qd
     Route: 048

REACTIONS (1)
  - Septic shock [Fatal]
